FAERS Safety Report 4912037-4 (Version None)
Quarter: 2006Q1

REPORT INFORMATION
  Report Type: 
  Country: None (occurrence: None)
  Receive Date: 20060215
  Receipt Date: 20041209
  Transmission Date: 20060701
  Serious: Yes (Hospitalization, Other)
  Sender: FDA-Public Use
  Company Number: US-AMGEN-US103432

PATIENT
  Sex: Male
  Weight: 91.3 kg

DRUGS (13)
  1. PROCRIT [Suspect]
     Indication: PRE-EXISTING DISEASE
     Route: 058
     Dates: start: 20030828, end: 20041115
  2. RIBAVIRIN [Concomitant]
     Route: 048
     Dates: start: 19990901, end: 20040624
  3. PEGASYS [Concomitant]
     Route: 058
     Dates: start: 20030615, end: 20040624
  4. FOLIC ACID [Concomitant]
  5. MULTIVITAMIN [Concomitant]
  6. NEUPOGEN [Concomitant]
     Indication: NEUTROPENIA
     Dates: start: 20030721, end: 20040601
  7. VITAMIN B-12 [Concomitant]
  8. ZOLPIDEM [Concomitant]
  9. CITALOPRAM HYDROBROMIDE [Concomitant]
  10. PERIACTIN [Concomitant]
  11. VIAGRA [Concomitant]
  12. SPORANOX [Concomitant]
     Route: 048
     Dates: start: 20040603
  13. INTERFERON ALFA [Concomitant]
     Dates: start: 19990901, end: 20000915

REACTIONS (6)
  - ANAEMIA [None]
  - ANTI-ERYTHROPOIETIN ANTIBODY POSITIVE [None]
  - BONE MARROW FAILURE [None]
  - CONDITION AGGRAVATED [None]
  - DERMATITIS [None]
  - NEUTROPENIA [None]
